FAERS Safety Report 6386967-3 (Version None)
Quarter: 2009Q4

REPORT INFORMATION
  Report Type: 
  Country: None (occurrence: None)
  Receive Date: 20091002
  Receipt Date: 20090921
  Transmission Date: 20100525
  Serious: Yes (Other)
  Sender: FDA-Public Use
  Company Number: US-WATSON-2009-07886

PATIENT
  Age: 14 Year
  Sex: Male

DRUGS (2)
  1. METFORMIN HYDROCHLORIDE EXTENDED RELEASE (WATSON LABORATORIES) [Suspect]
     Indication: DIABETES MELLITUS
     Dosage: 500 MG, DAILY
     Route: 048
     Dates: start: 20090910, end: 20090915
  2. LAMICTAL [Suspect]
     Indication: PETIT MAL EPILEPSY
     Dosage: 400 MG, BID
     Route: 048
     Dates: start: 20060101

REACTIONS (4)
  - CONDITION AGGRAVATED [None]
  - GROWTH ACCELERATED [None]
  - PETIT MAL EPILEPSY [None]
  - UNDERDOSE [None]
